FAERS Safety Report 4596901-4 (Version None)
Quarter: 2005Q1

REPORT INFORMATION
  Report Type: 
  Country: None (occurrence: None)
  Receive Date: 20050228
  Receipt Date: 20041004
  Transmission Date: 20050727
  Serious: Yes (Hospitalization, Other)
  Sender: FDA-Public Use
  Company Number: 05USA0059

PATIENT
  Age: 77 Year
  Sex: Male

DRUGS (5)
  1. AGGRASTAT [Suspect]
     Indication: ACUTE CORONARY SYNDROME
     Dates: start: 20010829, end: 20010831
  2. PLACEBO (PLACEBO) (TABLETS) [Suspect]
     Indication: MYOCARDIAL INFARCTION
     Dosage: DOSAGE FORM
     Dates: start: 20010831, end: 20010912
  3. ENOXAPARIN (HEPARIN-FRACTION, SODIUM SALT) (INJECTION) [Suspect]
     Indication: MYOCARDIAL INFARCTION
     Dates: start: 20010829, end: 20010829
  4. HEPARIN [Suspect]
     Indication: MYOCARDIAL INFARCTION
     Dates: start: 20010829, end: 20010829
  5. ASPIRIN [Suspect]

REACTIONS (6)
  - CATHETER SITE HAEMORRHAGE [None]
  - CONFUSIONAL STATE [None]
  - HAEMOGLOBIN DECREASED [None]
  - INCISION SITE HAEMORRHAGE [None]
  - MEDICATION ERROR [None]
  - VASCULAR PSEUDOANEURYSM [None]
